FAERS Safety Report 14057376 (Version 2)
Quarter: 2017Q4

REPORT INFORMATION
  Report Type: Spontaneous
  Country: US (occurrence: US)
  Receive Date: 20171006
  Receipt Date: 20171106
  Transmission Date: 20180321
  Serious: No
  Sender: FDA-Public Use
  Company Number: US-PFIZER INC-2017430966

PATIENT
  Age: 61 Year
  Sex: Male
  Weight: 79.83 kg

DRUGS (6)
  1. REVATIO [Suspect]
     Active Substance: SILDENAFIL CITRATE
     Indication: ERECTILE DYSFUNCTION
     Dosage: 20MG TABLET, ONE TABLET BY MOUTH EVERY DAY
     Route: 048
     Dates: start: 2017, end: 2017
  2. BUPROPION HCL ER [Concomitant]
     Active Substance: BUPROPION HYDROCHLORIDE
     Indication: SMOKING CESSATION THERAPY
     Dosage: 150MG TABLET, ONCE IN THE MORNING AND ONCE AT NIGHT
     Route: 048
     Dates: start: 20170523
  3. BABY ASPIRIN [Concomitant]
     Active Substance: ASPIRIN
     Indication: BLOOD DISORDER
     Dosage: 81MG TABLET ONE A DAY
     Route: 048
  4. BABY ASPIRIN [Concomitant]
     Active Substance: ASPIRIN
     Indication: PROPHYLAXIS
  5. LISINOPRIL. [Concomitant]
     Active Substance: LISINOPRIL
     Indication: HEART RATE IRREGULAR
     Dosage: 10MG TABLET, ONCE A DAY
     Route: 048
  6. ALLOPURINOL. [Concomitant]
     Active Substance: ALLOPURINOL
     Indication: GOUT
     Dosage: 300 MG TABLET ONCE A DAY
     Route: 048
     Dates: start: 1980

REACTIONS (1)
  - Drug ineffective for unapproved indication [Unknown]

NARRATIVE: CASE EVENT DATE: 2017
